FAERS Safety Report 6360653-8 (Version None)
Quarter: 2009Q3

REPORT INFORMATION
  Report Type: 
  Country: None (occurrence: None)
  Receive Date: 20090918
  Receipt Date: 20071130
  Transmission Date: 20100115
  Serious: Yes (Hospitalization)
  Sender: FDA-Public Use
  Company Number: US-ASTRAZENECA-2006UW07887

PATIENT
  Age: 9657 Day
  Sex: Female
  Weight: 124.7 kg

DRUGS (14)
  1. SEROQUEL [Suspect]
     Indication: BIPOLAR DISORDER
     Dosage: 100-600 MG
     Route: 048
     Dates: start: 20030716
  2. SEROQUEL [Suspect]
     Indication: DEPRESSION
     Dosage: 100-600 MG
     Route: 048
     Dates: start: 20030716
  3. SEROQUEL [Suspect]
     Indication: BIPOLAR I DISORDER
     Dosage: 100-600 MG
     Route: 048
     Dates: start: 20030716
  4. SEROQUEL [Suspect]
     Dosage: 100 TO 600 MG
     Route: 048
     Dates: start: 20030701, end: 20041122
  5. SEROQUEL [Suspect]
     Dosage: 100 TO 600 MG
     Route: 048
     Dates: start: 20030701, end: 20041122
  6. SEROQUEL [Suspect]
     Dosage: 100 TO 600 MG
     Route: 048
     Dates: start: 20030701, end: 20041122
  7. ABILIFY [Concomitant]
  8. GEODON [Concomitant]
     Dosage: 40 TO 80 MG
     Dates: start: 20041122
  9. LEXAPRO [Concomitant]
     Dates: start: 20041122
  10. WELLBUTRIN [Concomitant]
     Dosage: 150 TO 300 MG
     Dates: end: 20041122
  11. ZOLOFT [Concomitant]
  12. PROZAC [Concomitant]
  13. KLONOPIN [Concomitant]
  14. LAMICTAL [Concomitant]
     Dates: end: 20041122

REACTIONS (8)
  - ANAEMIA [None]
  - BACK PAIN [None]
  - BLOOD GLUCOSE INCREASED [None]
  - HYPOKALAEMIA [None]
  - INTENTIONAL OVERDOSE [None]
  - LUMBAR SPINAL STENOSIS [None]
  - OEDEMA PERIPHERAL [None]
  - PANCREATITIS ACUTE [None]
